FAERS Safety Report 15307231 (Version 6)
Quarter: 2019Q2

REPORT INFORMATION
  Report Type: Spontaneous
  Country: US (occurrence: US)
  Receive Date: 20180822
  Receipt Date: 20190507
  Transmission Date: 20190711
  Serious: Yes (Other)
  Sender: FDA-Public Use
  Company Number: US-GLAXOSMITHKLINE-US2018GSK151063

PATIENT
  Sex: Female

DRUGS (4)
  1. ESOMEPRAZOLE. [Suspect]
     Active Substance: ESOMEPRAZOLE MAGNESIUM
     Indication: PRODUCT USED FOR UNKNOWN INDICATION
     Dosage: 40 MG, QD
     Route: 048
  2. OMEPRAZOLE. [Suspect]
     Active Substance: OMEPRAZOLE
     Indication: PRODUCT USED FOR UNKNOWN INDICATION
     Dosage: 40 MG, UNK
     Route: 065
  3. PANTOPRAZOLE [Suspect]
     Active Substance: PANTOPRAZOLE
     Indication: PRODUCT USED FOR UNKNOWN INDICATION
     Dosage: 40 MG, UNK
     Route: 065
  4. PREVACID [Suspect]
     Active Substance: LANSOPRAZOLE
     Indication: ABDOMINAL DISCOMFORT
     Dosage: 15 MG, QD
     Route: 065

REACTIONS (11)
  - Renal disorder [Unknown]
  - Chronic kidney disease [Unknown]
  - Renal failure [Unknown]
  - Nephropathy [Unknown]
  - Renal impairment [Unknown]
  - Hypertensive nephropathy [Unknown]
  - Pollakiuria [Unknown]
  - Acute kidney injury [Unknown]
  - Urine odour abnormal [Unknown]
  - Dysuria [Unknown]
  - Ureteral disorder [Unknown]
